FAERS Safety Report 4650955-5 (Version None)
Quarter: 2005Q2

REPORT INFORMATION
  Report Type: 
  Country: None (occurrence: None)
  Receive Date: 20050427
  Receipt Date: 20050228
  Transmission Date: 20051028
  Serious: Yes (Hospitalization)
  Sender: FDA-Public Use
  Company Number: 602109

PATIENT
  Age: 3 Year
  Sex: Female
  Weight: 15.8 kg

DRUGS (3)
  1. FIBRIN SEALANT VAPOR HEATED, SOLVENT DETERGENT [Suspect]
     Indication: SKIN GRAFT
     Dosage: 4 ML; ONCE; TOPICAL
     Route: 061
     Dates: start: 20041116, end: 20041116
  2. FIBRIN SEALANT VAPOR HEATED, SOLVENT DETERGENT [Suspect]
     Indication: THERMAL BURN
     Dosage: 4 ML; ONCE; TOPICAL
     Route: 061
     Dates: start: 20041116, end: 20041116
  3. FIBRIN SEALANT VAPOR HEATED, SOLVENT DETERGENT [Suspect]
     Indication: WOUND
     Dosage: 4 ML; ONCE; TOPICAL
     Route: 061
     Dates: start: 20041116, end: 20041116

REACTIONS (1)
  - PNEUMONIA [None]
